FAERS Safety Report 8600593-4 (Version None)
Quarter: 2012Q3

REPORT INFORMATION
  Report Type: 
  Country: None (occurrence: None)
  Receive Date: 20120817
  Receipt Date: 20120807
  Transmission Date: 20120928
  Serious: Yes (Hospitalization, Other)
  Sender: FDA-Public Use
  Company Number: US-ELI_LILLY_AND_COMPANY-US201207003413

PATIENT
  Sex: Female

DRUGS (5)
  1. ILETIN [Suspect]
     Indication: DIABETES MELLITUS
     Dosage: UNK, UNKNOWN
  2. LANTUS [Concomitant]
  3. HUMULIN N [Suspect]
     Indication: DIABETES MELLITUS
     Dosage: 25 U, PRN
     Dates: start: 19870101, end: 20120710
  4. HUMULIN R [Suspect]
     Indication: DIABETES MELLITUS
     Dosage: UNK, UNKNOWN
     Dates: start: 19870101, end: 20120710
  5. HUMALOG [Suspect]
     Indication: DIABETES MELLITUS
     Dosage: UNK UNK, UNKNOWN
     Dates: end: 20020101

REACTIONS (6)
  - FUNGAL INFECTION [None]
  - DRUG HYPERSENSITIVITY [None]
  - HYPERGLYCAEMIA [None]
  - HYPERTENSION [None]
  - BLOOD GLUCOSE INCREASED [None]
  - CORONARY ARTERY DISEASE [None]
